FAERS Safety Report 12458881 (Version 2)
Quarter: 2016Q2

REPORT INFORMATION
  Report Type: Spontaneous
  Country: IT (occurrence: IT)
  Receive Date: 20160613
  Receipt Date: 20160627
  Transmission Date: 20160815
  Serious: Yes (Other)
  Sender: FDA-Public Use
  Company Number: IT-SUN PHARMACEUTICAL INDUSTRIES LTD-2016RR-118355

PATIENT
  Age: 10 Year
  Sex: Male
  Weight: 35 kg

DRUGS (1)
  1. OLANZAPINE. [Suspect]
     Active Substance: OLANZAPINE
     Indication: ABNORMAL BEHAVIOUR
     Dosage: 5 MG DAILY
     Route: 048
     Dates: start: 20151220, end: 20151230

REACTIONS (2)
  - Akathisia [Recovered/Resolved]
  - Product use issue [Recovered/Resolved]

NARRATIVE: CASE EVENT DATE: 20151220
